FAERS Safety Report 12937403 (Version 1)
Quarter: 2016Q4

REPORT INFORMATION
  Report Type: Spontaneous
  Country: US (occurrence: US)
  Receive Date: 20161114
  Receipt Date: 20161114
  Transmission Date: 20170207
  Serious: No
  Sender: FDA-Public Use
  Company Number: US-GALDERMA-US15007691

PATIENT
  Age: 34 Year
  Sex: Female

DRUGS (7)
  1. FLONASE (FLUTICASONE NASAL) SPRAY [Concomitant]
     Indication: SEASONAL ALLERGY
  2. ZYRTEC-D (CETIRIZINE, PSEUDOEPHEDRINE) [Concomitant]
     Route: 048
  3. DYMISTA (AZELASTINE HYDROCHLORIDE AND FLUTICASONE PROPIONATE) [Concomitant]
     Indication: SEASONAL ALLERGY
  4. JOHNSON + JOHNSON BABY PRODUCTS [Concomitant]
     Indication: THERAPEUTIC SKIN CARE TOPICAL
     Route: 061
  5. UNKNOWN SHAMPOO [Concomitant]
     Indication: THERAPEUTIC SKIN CARE TOPICAL
     Route: 061
  6. CLOBEX [Suspect]
     Active Substance: CLOBETASOL PROPIONATE
     Indication: ACNE
     Dosage: 0.05%
     Route: 061
     Dates: start: 2014, end: 2014
  7. BATH AND BODY WORKS PRODUCTS [Concomitant]
     Indication: THERAPEUTIC SKIN CARE TOPICAL
     Route: 061

REACTIONS (2)
  - Product use issue [Not Recovered/Not Resolved]
  - Drug ineffective for unapproved indication [Not Recovered/Not Resolved]

NARRATIVE: CASE EVENT DATE: 2014
